FAERS Safety Report 19095564 (Version 1)
Quarter: 2021Q2

REPORT INFORMATION
  Report Type: Spontaneous
  Country: JP (occurrence: JP)
  Receive Date: 20210406
  Receipt Date: 20210406
  Transmission Date: 20210717
  Serious: Yes (Hospitalization)
  Sender: FDA-Public Use
  Company Number: JP-009507513-2103JPN002651J

PATIENT
  Age: 9 Decade
  Sex: Female

DRUGS (1)
  1. KEYTRUDA [Suspect]
     Active Substance: PEMBROLIZUMAB
     Indication: COLON CANCER STAGE II
     Dosage: UNK
     Route: 041
     Dates: start: 202003

REACTIONS (1)
  - Inflammation [Recovering/Resolving]

NARRATIVE: CASE EVENT DATE: 2020
